FAERS Safety Report 17834799 (Version 1)
Quarter: 2020Q2

REPORT INFORMATION
  Report Type: Report from Study
  Country: None (occurrence: US)
  Receive Date: 20200528
  Receipt Date: 20200528
  Transmission Date: 20200714
  Serious: Yes (Hospitalization)
  Sender: FDA-Public Use
  Company Number: US-ABBVIE-20P-163-3419731-00

PATIENT
  Age: 59 Year
  Sex: Male

DRUGS (1)
  1. IMBRUVICA [Suspect]
     Active Substance: IBRUTINIB
     Indication: CHRONIC LYMPHOCYTIC LEUKAEMIA
     Route: 048

REACTIONS (6)
  - Pneumonia [Unknown]
  - Gout [Unknown]
  - Weight decreased [Unknown]
  - COVID-19 [Unknown]
  - Atrial fibrillation [Unknown]
  - Leukaemia [Unknown]

NARRATIVE: CASE EVENT DATE: 20200416
